FAERS Safety Report 15455711 (Version 1)
Quarter: 2018Q3

REPORT INFORMATION
  Report Type: Spontaneous
  Country: US (occurrence: US)
  Receive Date: 20180927
  Receipt Date: 20180927
  Transmission Date: 20181014
  Serious: Yes (Other)
  Sender: FDA-Public Use
  Company Number: None

PATIENT
  Age: 37 Year
  Sex: Female
  Weight: 108.86 kg

DRUGS (2)
  1. RISPERIDONE 1MG/ML [Suspect]
     Active Substance: RISPERIDONE
  2. RISPERIDONE 1MG/ML [Suspect]
     Active Substance: RISPERIDONE
     Route: 048

REACTIONS (3)
  - Condition aggravated [None]
  - Intentional self-injury [None]
  - Product substitution issue [None]
